FAERS Safety Report 13913633 (Version 1)
Quarter: 2017Q3

REPORT INFORMATION
  Report Type: Spontaneous
  Country: US (occurrence: US)
  Receive Date: 20170828
  Receipt Date: 20170828
  Transmission Date: 20171127
  Serious: No
  Sender: FDA-Public Use
  Company Number: US-ROCHE-1138186

PATIENT
  Age: 6 Year
  Sex: Female
  Weight: 20.9 kg

DRUGS (1)
  1. NUTROPIN [Suspect]
     Active Substance: SOMATROPIN
     Indication: TURNER^S SYNDROME
     Route: 058
     Dates: start: 19990113

REACTIONS (4)
  - Pharyngitis streptococcal [Unknown]
  - Dry skin [Unknown]
  - Gastroenteritis viral [Unknown]
  - Diarrhoea [Unknown]

NARRATIVE: CASE EVENT DATE: 20001012
